FAERS Safety Report 6871247-X (Version None)
Quarter: 2010Q3

REPORT INFORMATION
  Report Type: 
  Country: None (occurrence: None)
  Receive Date: 20100723
  Receipt Date: 20100712
  Transmission Date: 20110219
  Serious: Yes (Other)
  Sender: FDA-Public Use
  Company Number: IL-JNJFOC-20100706121

PATIENT

DRUGS (4)
  1. HALOPERIDOL [Suspect]
     Indication: DRUG EXPOSURE DURING PREGNANCY
     Route: 064
  2. PENFLURIDOL [Suspect]
     Indication: DRUG EXPOSURE DURING PREGNANCY
     Route: 064
  3. CHLORDIAZEPOXIDE [Suspect]
     Indication: PRODUCT USED FOR UNKNOWN INDICATION
     Route: 015
  4. FLUOXETINE [Suspect]
     Indication: PRODUCT USED FOR UNKNOWN INDICATION
     Route: 015

REACTIONS (1)
  - LETHARGY [None]
